FAERS Safety Report 12424819 (Version 2)
Quarter: 2016Q4

REPORT INFORMATION
  Report Type: Spontaneous
  Country: GB (occurrence: GB)
  Receive Date: 20160601
  Receipt Date: 20161028
  Transmission Date: 20170207
  Serious: Yes (Other)
  Sender: FDA-Public Use
  Company Number: GB-009507513-1605GBR014249

PATIENT
  Age: 80 Year
  Sex: Male
  Weight: 110 kg

DRUGS (9)
  1. GAVISCON ADVANCE [Concomitant]
     Active Substance: POTASSIUM BICARBONATE\SODIUM ALGINATE
     Dosage: TAKE 1 OR 2
     Dates: start: 20151230
  2. LATANOPROST. [Concomitant]
     Active Substance: LATANOPROST
     Dosage: AT NIGHT
     Dates: start: 20151230
  3. ACETIC ACID. [Concomitant]
     Active Substance: ACETIC ACID
     Dosage: SPRAY
     Dates: start: 20160224, end: 20160302
  4. FUROSEMIDE. [Concomitant]
     Active Substance: FUROSEMIDE
     Dosage: EACH MORNING
     Route: 048
     Dates: start: 20160211
  5. SITAGLIPTIN PHOSPHATE [Suspect]
     Active Substance: SITAGLIPTIN PHOSPHATE
     Indication: TYPE 2 DIABETES MELLITUS
     Dosage: 50 MG, UNK
     Route: 048
     Dates: start: 20160421, end: 20160505
  6. INSUMAN [Concomitant]
     Active Substance: INSULIN HUMAN
     Dosage: USE AS DIRECTED
     Dates: start: 20160510
  7. OPTIVE [Concomitant]
     Active Substance: CARBOXYMETHYLCELLULOSE SODIUM\GLYCERIN
     Dosage: UNK UNK, AS NECESSARY
     Dates: start: 20151230
  8. EPLERENONE. [Concomitant]
     Active Substance: EPLERENONE
     Dosage: 1 DF, QD
     Dates: start: 20160310, end: 20160407
  9. ALBUTEROL. [Concomitant]
     Active Substance: ALBUTEROL
     Dosage: 2 DF, AS NECESSARY
     Route: 055
     Dates: start: 20150710

REACTIONS (3)
  - Hyperhidrosis [Recovered/Resolved]
  - Peripheral swelling [Recovered/Resolved]
  - Arthralgia [Recovered/Resolved]

NARRATIVE: CASE EVENT DATE: 20160422
